FAERS Safety Report 6065688-0 (Version None)
Quarter: 2009Q1

REPORT INFORMATION
  Report Type: 
  Country: None (occurrence: None)
  Receive Date: 20090130
  Receipt Date: 20090122
  Transmission Date: 20090719
  Serious: Yes (Death)
  Sender: FDA-Public Use
  Company Number: 200911037GPV

PATIENT
  Age: 56 Year
  Sex: Male

DRUGS (9)
  1. FLUDARA [Suspect]
     Indication: CHRONIC LYMPHOCYTIC LEUKAEMIA
     Dosage: ORAL
     Route: 048
  2. CAMPATH [Suspect]
     Indication: CHRONIC LYMPHOCYTIC LEUKAEMIA
     Dosage: 30 MG SUBCUTANEOUS
     Route: 058
     Dates: start: 20081216
  3. CYCLOPHOSPHAMIDE [Suspect]
     Indication: CHRONIC LYMPHOCYTIC LEUKAEMIA
     Dosage: ORAL
     Route: 048
  4. PLAVIX [Suspect]
     Indication: DRUG USE FOR UNKNOWN INDICATION
  5. EPO (ERYTHROPOIETIN) [Suspect]
     Indication: DRUG USE FOR UNKNOWN INDICATION
     Dates: start: 20081222
  6. RITUXIMAB (RITUXIMAB) [Concomitant]
  7. CYCLOPHOSPHAMIDE W/VINCRISTINE/PREDNISONE [Concomitant]
  8. DOXORUBICIN HCL [Concomitant]
  9. G-CSF (G-CSF) [Concomitant]

REACTIONS (4)
  - CEREBRAL HAEMORRHAGE [None]
  - DISEASE PROGRESSION [None]
  - HAEMORRHAGIC STROKE [None]
  - THROMBOCYTOPENIA [None]
